FAERS Safety Report 19614089 (Version 1)
Quarter: 2021Q3

REPORT INFORMATION
  Report Type: Spontaneous
  Country: FR (occurrence: FR)
  Receive Date: 20210727
  Receipt Date: 20210727
  Transmission Date: 20211014
  Serious: Yes (Life-Threatening, Other)
  Sender: FDA-Public Use
  Company Number: FR-ACCORD-232900

PATIENT
  Age: 18 Year
  Sex: Male

DRUGS (6)
  1. IFOSFAMIDE. [Concomitant]
     Active Substance: IFOSFAMIDE
     Indication: OSTEOSARCOMA
     Dosage: 74.5 G/M2
     Dates: end: 201601
  2. CISPLATIN. [Concomitant]
     Active Substance: CISPLATIN
     Indication: OSTEOSARCOMA
     Dosage: 0.19 G/M2
     Dates: end: 201601
  3. ENDOXAN [Concomitant]
     Active Substance: CYCLOPHOSPHAMIDE
     Indication: OSTEOSARCOMA
     Dosage: 2.9 G/M2
     Dates: end: 201601
  4. VEPESIDE [Concomitant]
     Active Substance: ETOPOSIDE
     Indication: OSTEOSARCOMA
     Dosage: 1.6 G/M2
     Dates: end: 201601
  5. ADRIBLASTIN [Concomitant]
     Active Substance: DOXORUBICIN HYDROCHLORIDE
     Indication: OSTEOSARCOMA
     Dosage: 0.23 G/M2
     Dates: end: 201601
  6. METHOTREXATE. [Suspect]
     Active Substance: METHOTREXATE
     Indication: OSTEOSARCOMA
     Dosage: 23.6 G/M2
     Dates: end: 201601

REACTIONS (6)
  - Aplasia [Unknown]
  - Acute kidney injury [Unknown]
  - Cholestasis [Unknown]
  - Gastrointestinal toxicity [Unknown]
  - Hepatitis [Unknown]
  - Off label use [Unknown]
